FAERS Safety Report 7262713-6 (Version None)
Quarter: 2011Q1

REPORT INFORMATION
  Report Type: 
  Country: None (occurrence: None)
  Receive Date: 20110130
  Receipt Date: 20100924
  Transmission Date: 20110831
  Serious: No
  Sender: FDA-Public Use
  Company Number: US-ABBOTT-10P-163-0673871-00

PATIENT
  Age: 48 Year
  Sex: Male
  Weight: 107.14 kg

DRUGS (9)
  1. NEURONTIN [Concomitant]
     Indication: DIABETES MELLITUS
  2. UNKNOWN HIGH BLOOD MEDICATION [Concomitant]
     Indication: HYPERTENSION
  3. HUMIRA [Suspect]
     Indication: RHEUMATOID ARTHRITIS
     Dosage: ONCE, 1ST LOADING DOSE, WILL INJECT Q2WK
     Route: 058
     Dates: start: 20100920, end: 20100920
  4. NEURONTIN [Concomitant]
     Indication: PAIN IN EXTREMITY
  5. GLUCOPHAGE [Concomitant]
     Indication: DIABETES MELLITUS
  6. ASPIRIN [Concomitant]
     Indication: PRODUCT USED FOR UNKNOWN INDICATION
     Route: 048
  7. PREDNISONE [Concomitant]
     Indication: PRODUCT USED FOR UNKNOWN INDICATION
     Route: 048
  8. MELOXICAM [Concomitant]
     Indication: RHEUMATOID ARTHRITIS
  9. FOLIC ACID [Concomitant]
     Indication: PRODUCT USED FOR UNKNOWN INDICATION

REACTIONS (2)
  - INJECTION SITE PAIN [None]
  - MYALGIA [None]
